FAERS Safety Report 14192605 (Version 4)
Quarter: 2018Q1

REPORT INFORMATION
  Report Type: Report from Study
  Country: US (occurrence: US)
  Receive Date: 20171115
  Receipt Date: 20180323
  Transmission Date: 20180508
  Serious: Yes (Death, Hospitalization, Other)
  Sender: FDA-Public Use
  Company Number: US-VIFOR (INTERNATIONAL) INC.-VIT-2017-12161

PATIENT
  Age: 62 Year
  Sex: Male
  Weight: 67 kg

DRUGS (10)
  1. FAMOTIDINE. [Concomitant]
     Active Substance: FAMOTIDINE
  2. FOLIC ACID. [Concomitant]
     Active Substance: FOLIC ACID
  3. THIAMINE HYDROCHLORIDE. [Concomitant]
     Active Substance: THIAMINE HYDROCHLORIDE
  4. VELTASSA [Suspect]
     Active Substance: PATIROMER
     Route: 048
     Dates: start: 2016, end: 201802
  5. AMLODIPINE [Concomitant]
     Active Substance: AMLODIPINE BESYLATE
  6. COLECALCIFEROL [Concomitant]
     Active Substance: CHOLECALCIFEROL
  7. RENO [Concomitant]
  8. VELTASSA [Suspect]
     Active Substance: PATIROMER
     Indication: HYPERKALAEMIA
     Route: 048
     Dates: start: 20161123
  9. LISINOPRIL. [Concomitant]
     Active Substance: LISINOPRIL
  10. RENVELA [Concomitant]
     Active Substance: SEVELAMER CARBONATE

REACTIONS (9)
  - Fistula [Unknown]
  - Mastoid disorder [Unknown]
  - Sinusitis [Unknown]
  - Death [Fatal]
  - Cerebral small vessel ischaemic disease [Unknown]
  - Seizure [Unknown]
  - Cellulitis [Unknown]
  - Cerebral infarction [Unknown]
  - Tinea pedis [Unknown]

NARRATIVE: CASE EVENT DATE: 20171023
